FAERS Safety Report 24942163 (Version 1)
Quarter: 2025Q1

REPORT INFORMATION
  Report Type: Spontaneous
  Country: US (occurrence: US)
  Receive Date: 20250207
  Receipt Date: 20250207
  Transmission Date: 20250408
  Serious: No
  Sender: MYLAN
  Company Number: US-MYLANLABS-2025M1008563

PATIENT
  Sex: Female

DRUGS (1)
  1. ESTRADIOL [Suspect]
     Active Substance: ESTRADIOL
     Indication: Product used for unknown indication
     Route: 062

REACTIONS (5)
  - Vulvovaginal burning sensation [Unknown]
  - Skin burning sensation [Unknown]
  - Dyspepsia [Unknown]
  - Product substitution issue [Unknown]
  - Product prescribing error [Unknown]
